FAERS Safety Report 5840189-0 (Version None)
Quarter: 2008Q3

REPORT INFORMATION
  Report Type: 
  Country: None (occurrence: None)
  Receive Date: 20080807
  Receipt Date: 20080807
  Transmission Date: 20090109
  Serious: No
  Sender: FDA-Public Use
  Company Number: None

PATIENT
  Sex: Male
  Weight: 96.8 kg

DRUGS (1)
  1. PEG-INTRON [Suspect]
     Dosage: 312 MCG

REACTIONS (4)
  - AGITATION [None]
  - DISEASE PROGRESSION [None]
  - MENTAL STATUS CHANGES [None]
  - PAIN [None]
